FAERS Safety Report 12548124 (Version 1)
Quarter: 2016Q3

REPORT INFORMATION
  Report Type: Spontaneous
  Country: AR (occurrence: AR)
  Receive Date: 20160712
  Receipt Date: 20160712
  Transmission Date: 20161109
  Serious: Yes (Other)
  Sender: FDA-Public Use
  Company Number: PHHY2016AR089773

PATIENT
  Age: 33 Year
  Sex: Female

DRUGS (2)
  1. ZOFRAN [Suspect]
     Active Substance: ONDANSETRON HYDROCHLORIDE
     Indication: NAUSEA
     Dosage: 8 MG, QD
     Route: 048
     Dates: start: 201602
  2. ZOFRAN [Suspect]
     Active Substance: ONDANSETRON HYDROCHLORIDE
     Dosage: 8 MG, PRN
     Route: 048

REACTIONS (5)
  - Product use issue [Unknown]
  - Malaise [Unknown]
  - Maternal exposure during pregnancy [Unknown]
  - Haemorrhage [Recovered/Resolved]
  - Nausea [Unknown]
